FAERS Safety Report 15827838 (Version 2)
Quarter: 2019Q1

REPORT INFORMATION
  Report Type: Report from Study
  Country: DE (occurrence: DE)
  Receive Date: 20190115
  Receipt Date: 20190221
  Transmission Date: 20190417
  Serious: Yes (Hospitalization, Other)
  Sender: FDA-Public Use
  Company Number: DE-INCYTE CORPORATION-2018IN006688

PATIENT

DRUGS (29)
  1. INCB018424 [Suspect]
     Active Substance: RUXOLITINIB
     Dosage: 30 MG, QD
     Route: 048
     Dates: start: 20171118, end: 20171218
  2. INCB018424 [Suspect]
     Active Substance: RUXOLITINIB
     Dosage: 25 MG, QD
     Route: 048
     Dates: start: 20171219, end: 20180103
  3. SPIRONOLACTONE. [Concomitant]
     Active Substance: SPIRONOLACTONE
     Indication: HYPERTENSION
     Dosage: 50 MG, QD (1/2-0-0)
     Route: 065
  4. RESTEX [Concomitant]
     Active Substance: BENSERAZIDE\LEVODOPA
     Indication: RESTLESS LEGS SYNDROME
     Dosage: 100/25  MG, QD
     Route: 065
  5. NEUPRO [Concomitant]
     Active Substance: ROTIGOTINE
     Indication: RESTLESS LEGS SYNDROME
     Dosage: 4 MG, QD (24H)
     Route: 065
  6. PREDNISOLONE. [Concomitant]
     Active Substance: PREDNISOLONE
     Indication: DYSPNOEA
     Dosage: 50 MG, QD
     Route: 065
     Dates: start: 20171229, end: 20180104
  7. INCB018424 [Suspect]
     Active Substance: RUXOLITINIB
     Dosage: 10 MG, QD
     Route: 048
     Dates: start: 20180912
  8. NEUPRO [Concomitant]
     Active Substance: ROTIGOTINE
     Dosage: 2 MG, QD
     Route: 065
     Dates: start: 20181116
  9. MOGADAN [Concomitant]
     Indication: SLEEP DISORDER
     Dosage: 5 MG, PRN (0-0-0-1/2)
     Route: 065
  10. FERRO SANOL [Concomitant]
     Active Substance: FERROUS GLYCINE SULFATE
     Dosage: 200 OT, QD
     Route: 065
     Dates: start: 20170821, end: 20170831
  11. XYLONEST [Concomitant]
     Active Substance: PRILOCAINE HYDROCHLORIDE
     Indication: LOCAL ANAESTHESIA
     Dosage: UNK
     Route: 065
     Dates: start: 20180417
  12. LEVOBAT [Concomitant]
     Indication: RESTLESS LEGS SYNDROME
     Dosage: 100/25 MG, QD
     Route: 065
     Dates: start: 20181116
  13. RIVOTRIL [Concomitant]
     Active Substance: CLONAZEPAM
     Dosage: 5 MG, QD
     Route: 065
  14. FERRO SANOL [Concomitant]
     Active Substance: FERROUS GLYCINE SULFATE
     Indication: ANAEMIA
     Dosage: 100 MG, QD
     Route: 065
     Dates: start: 20170719, end: 20170821
  15. NEUPRO [Concomitant]
     Active Substance: ROTIGOTINE
     Dosage: 3 MG, QD
     Route: 065
  16. TILIDIN [Concomitant]
     Active Substance: NALOXONE HYDROCHLORIDE\TILIDINE HYDROCHLORIDE
     Indication: PAIN
     Dosage: 50 MG / 4 MG, PRN
     Route: 065
  17. BISOPROLOL [Concomitant]
     Active Substance: BISOPROLOL
     Indication: HYPERTENSION
     Dosage: 2.5 MG, BID
     Route: 065
  18. NITRENDIPINE [Concomitant]
     Active Substance: NITRENDIPINE
     Indication: HYPERTENSION
     Dosage: U5 MG, QD
     Route: 065
  19. LOSARTAN POTASSIUM. [Concomitant]
     Active Substance: LOSARTAN POTASSIUM
     Indication: HYPERTENSION
     Dosage: 25 OT, QD
     Route: 065
  20. MOXONIDINE [Concomitant]
     Active Substance: MOXONIDINE
     Indication: HYPERTENSION
     Dosage: 0.2 MG, QD
     Route: 065
  21. RIVOTRIL [Concomitant]
     Active Substance: CLONAZEPAM
     Indication: RESTLESS LEGS SYNDROME
     Dosage: 2.5 MG, QD (0-0-0-5)
     Route: 065
  22. TORASEMIDE [Concomitant]
     Active Substance: TORSEMIDE
     Indication: HYPERTENSION
     Dosage: 5 MG, QD
     Route: 065
     Dates: start: 20171127
  23. TORASEMIDE [Concomitant]
     Active Substance: TORSEMIDE
     Indication: LEFT VENTRICULAR FAILURE
     Dosage: 10 MG, UNK
     Route: 065
     Dates: start: 20180327
  24. PREDNISOLONE. [Concomitant]
     Active Substance: PREDNISOLONE
     Dosage: 25 MG, QD
     Route: 065
     Dates: start: 20180105, end: 20180111
  25. INCB018424 [Suspect]
     Active Substance: RUXOLITINIB
     Indication: MYELOFIBROSIS
     Dosage: 20 MG, QD
     Route: 048
     Dates: start: 20170525
  26. CANDESARTAN. [Concomitant]
     Active Substance: CANDESARTAN
     Indication: HYPERTENSION
     Dosage: 4 OT, QD
     Route: 065
     Dates: start: 201810
  27. TORASEMIDE [Concomitant]
     Active Substance: TORSEMIDE
     Dosage: 15 MG, QD
     Route: 065
  28. ASPIRIN. [Concomitant]
     Active Substance: ASPIRIN
     Indication: HYPERTENSION
     Dosage: 100 MG, QD (0-1-0)
  29. PREDNISOLONE. [Concomitant]
     Active Substance: PREDNISOLONE
     Dosage: 10 OT, QD
     Route: 065
     Dates: start: 20180112, end: 20180118

REACTIONS (5)
  - Weight decreased [Unknown]
  - Keratoacanthoma [Unknown]
  - Bowen^s disease [Recovered/Resolved]
  - Basal cell carcinoma [Recovered/Resolved]
  - Skin plaque [Unknown]

NARRATIVE: CASE EVENT DATE: 20180625
